FAERS Safety Report 4841318-8 (Version None)
Quarter: 2005Q4

REPORT INFORMATION
  Report Type: 
  Country: None (occurrence: None)
  Receive Date: 20051130
  Receipt Date: 20041203
  Transmission Date: 20060501
  Serious: Yes (Other)
  Sender: FDA-Public Use
  Company Number: GB-GLAXOSMITHKLINE-B0360832A

PATIENT
  Sex: Female

DRUGS (2)
  1. PAROXETINE HYDROCHLORIDE [Suspect]
     Indication: DEPRESSION
     Route: 065
  2. PAROXETINE HYDROCHLORIDE [Suspect]
     Route: 048

REACTIONS (5)
  - ANGER [None]
  - DRUG DEPENDENCE [None]
  - FRUSTRATION [None]
  - ILL-DEFINED DISORDER [None]
  - IRRITABILITY [None]
